FAERS Safety Report 6345610-X (Version None)
Quarter: 2009Q3

REPORT INFORMATION
  Report Type: 
  Country: None (occurrence: None)
  Receive Date: 20090909
  Receipt Date: 20090827
  Transmission Date: 20100115
  Serious: Yes (Hospitalization, Other)
  Sender: FDA-Public Use
  Company Number: US-PFIZER INC-2009263185

PATIENT
  Sex: Female
  Weight: 54.422 kg

DRUGS (9)
  1. CHANTIX [Suspect]
     Indication: SMOKING CESSATION THERAPY
     Dosage: UNK
     Dates: start: 20081001, end: 20081201
  2. CHANTIX [Suspect]
     Dosage: UNK
     Dates: start: 20090101, end: 20090101
  3. CHANTIX [Suspect]
     Dosage: UNK
     Dates: start: 20090501
  4. OXYCONTIN [Suspect]
     Indication: PAIN
     Dosage: 120 MG, 1X/DAY
     Dates: end: 20090823
  5. PROMETHAZINE HYDROCHLORIDE [Concomitant]
  6. ZOFRAN [Concomitant]
     Dosage: UNK
  7. CLARITIN [Concomitant]
  8. FLONASE [Concomitant]
  9. INAPSINE [Concomitant]

REACTIONS (7)
  - ABDOMINAL NEOPLASM [None]
  - FAECALOMA [None]
  - IMPAIRED GASTRIC EMPTYING [None]
  - NAUSEA [None]
  - VOMITING [None]
  - WEIGHT DECREASED [None]
  - WITHDRAWAL SYNDROME [None]
